FAERS Safety Report 4867060-5 (Version None)
Quarter: 2005Q4

REPORT INFORMATION
  Report Type: 
  Country: None (occurrence: None)
  Receive Date: 20051221
  Receipt Date: 20051214
  Transmission Date: 20060501
  Serious: Yes (Hospitalization, Other)
  Sender: FDA-Public Use
  Company Number: FRWYE236214DEC05

PATIENT
  Age: 71 Year
  Sex: Female

DRUGS (1)
  1. EFFEXOR XR [Suspect]
     Indication: DEPRESSION
     Dosage: 37.5 MG 1X PER 1 DAY ORAL
     Route: 048
     Dates: start: 20051015, end: 20051025

REACTIONS (6)
  - ERYTHEMA [None]
  - HOT FLUSH [None]
  - HYPERHIDROSIS [None]
  - SEROTONIN SYNDROME [None]
  - TACHYCARDIA [None]
  - VASOCONSTRICTION [None]
